FAERS Safety Report 8672919 (Version 4)
Quarter: 2012Q4

REPORT INFORMATION
  Report Type: Report from Study
  Country: JP (occurrence: JP)
  Receive Date: 20120719
  Receipt Date: 20121024
  Transmission Date: 20130627
  Serious: Yes (Other)
  Sender: FDA-Public Use
  Company Number: JP-JNJFOC-20120707188

PATIENT
  Age: 76 Year
  Sex: Male
  Weight: 53 kg

DRUGS (12)
  1. USTEKINUMAB [Suspect]
     Indication: PSORIASIS
     Route: 058
     Dates: start: 20120806
  2. USTEKINUMAB [Suspect]
     Indication: PSORIASIS
     Route: 058
     Dates: start: 20120507
  3. USTEKINUMAB [Suspect]
     Indication: PSORIASIS
     Route: 058
     Dates: start: 20111121
  4. USTEKINUMAB [Suspect]
     Indication: PSORIASIS
     Route: 058
     Dates: start: 20110829
  5. USTEKINUMAB [Suspect]
     Indication: PSORIASIS
     Route: 058
     Dates: start: 20120213
  6. USTEKINUMAB [Suspect]
     Indication: PSORIASIS
     Route: 058
     Dates: start: 20110801
  7. MYSER [Concomitant]
     Indication: PSORIASIS
     Dosage: as needed
     Route: 062
  8. HEPARINOID [Concomitant]
     Indication: PSORIASIS
     Dosage: as needed
     Route: 061
     Dates: start: 20120607
  9. BESOFTEN [Concomitant]
     Dosage: as needed
     Route: 062
  10. GLYMESASON [Concomitant]
     Dosage: as needed
     Route: 062
  11. VIDARABINE [Concomitant]
     Dosage: as needed
  12. ANTEBATE [Concomitant]
     Dosage: as needed

REACTIONS (1)
  - Prostate cancer [Not Recovered/Not Resolved]
